FAERS Safety Report 20318400 (Version 3)
Quarter: 2023Q4

REPORT INFORMATION
  Report Type: Other
  Country: US (occurrence: None)
  Receive Date: 20220110
  Receipt Date: 20231211
  Transmission Date: 20240109
  Serious: Yes (Other)
  Sender: FDA-Public Use
  Company Number: US-ROCHE-2995168

PATIENT

DRUGS (5)
  1. TAZEMETOSTAT [Suspect]
     Active Substance: TAZEMETOSTAT
     Indication: Follicular lymphoma
     Route: 048
  2. TAZEMETOSTAT [Suspect]
     Active Substance: TAZEMETOSTAT
     Route: 048
  3. TAZEMETOSTAT [Suspect]
     Active Substance: TAZEMETOSTAT
     Route: 048
  4. RITUXIMAB [Suspect]
     Active Substance: RITUXIMAB
     Indication: Follicular lymphoma
     Route: 041
  5. LENALIDOMIDE [Suspect]
     Active Substance: LENALIDOMIDE
     Indication: Follicular lymphoma
     Route: 065

REACTIONS (18)
  - Neutropenia [Unknown]
  - Abdominal pain [Unknown]
  - Non-cardiac chest pain [Unknown]
  - Diverticulitis [Unknown]
  - Pneumonia [Unknown]
  - Platelet count decreased [Unknown]
  - Syncope [Unknown]
  - Blood creatine phosphokinase increased [Unknown]
  - Renal injury [Unknown]
  - Embolism [Unknown]
  - Hallucination [Unknown]
  - Rash maculo-papular [Unknown]
  - Thrombocytopenia [Unknown]
  - Headache [Unknown]
  - Diarrhoea [Unknown]
  - Fatigue [Unknown]
  - Cytopenia [Unknown]
  - COVID-19 [Unknown]
